FAERS Safety Report 6093392-1 (Version None)
Quarter: 2009Q1

REPORT INFORMATION
  Report Type: 
  Country: None (occurrence: None)
  Receive Date: 20090226
  Receipt Date: 20090213
  Transmission Date: 20090719
  Serious: Yes (Other)
  Sender: FDA-Public Use
  Company Number: US-ROCHE-614607

PATIENT
  Sex: Male

DRUGS (3)
  1. PEG-INTERFERON A-2A (RO 25-8310) [Suspect]
     Indication: HEPATITIS C
     Dosage: FORM: PRE-FILLED SYRINGE (PFS), IN WEEK 32
     Route: 065
     Dates: start: 20080711
  2. RIBAVIRIN [Suspect]
     Indication: HEPATITIS C
     Dosage: IN WEEK 32
     Route: 065
     Dates: start: 20080711
  3. NEUPOGEN [Suspect]
     Route: 065

REACTIONS (8)
  - BONE PAIN [None]
  - HERNIA REPAIR [None]
  - INFLUENZA LIKE ILLNESS [None]
  - INSOMNIA [None]
  - LETHARGY [None]
  - PLATELET COUNT DECREASED [None]
  - RED BLOOD CELL COUNT DECREASED [None]
  - WHITE BLOOD CELL COUNT DECREASED [None]
